FAERS Safety Report 9603744 (Version 2)
Quarter: 2013Q4

REPORT INFORMATION
  Report Type: Spontaneous
  Country: ZA (occurrence: ZA)
  Receive Date: 20131007
  Receipt Date: 20131016
  Transmission Date: 20140711
  Serious: Yes (Other)
  Sender: FDA-Public Use
  Company Number: ZA-US-EMD SERONO, INC.-7240826

PATIENT
  Sex: Male

DRUGS (4)
  1. REBIF [Suspect]
     Indication: RELAPSING-REMITTING MULTIPLE SCLEROSIS
     Route: 058
     Dates: start: 20130830
  2. REBIF [Suspect]
     Route: 058
  3. STILPANE                           /01152401/ [Concomitant]
     Indication: MIGRAINE
  4. OMEGA 3 [Concomitant]
     Indication: PRODUCT USED FOR UNKNOWN INDICATION

REACTIONS (7)
  - Loss of consciousness [Unknown]
  - Foaming at mouth [Unknown]
  - Migraine [Unknown]
  - Syncope [Unknown]
  - Pain [Unknown]
  - Fatigue [Unknown]
  - Incorrect dose administered [Unknown]
